FAERS Safety Report 13252326 (Version 2)
Quarter: 2017Q1

REPORT INFORMATION
  Report Type: Report from Study
  Country: FR (occurrence: FR)
  Receive Date: 20170220
  Receipt Date: 20170310
  Transmission Date: 20170428
  Serious: Yes (Death, Life-Threatening, Hospitalization, Other)
  Sender: FDA-Public Use
  Company Number: FR-BRISTOL-MYERS SQUIBB COMPANY-BMS-2017-013866

PATIENT
  Age: 59 Year
  Sex: Male
  Weight: 89 kg

DRUGS (13)
  1. DACLATASVIR DIHYDROCHLORIDE [Suspect]
     Active Substance: DACLATASVIR DIHYDROCHLORIDE
     Indication: HEPATITIS B
     Dosage: 60 MG, QD
     Route: 065
     Dates: start: 20150910, end: 20160306
  2. RIBAVIRIN. [Suspect]
     Active Substance: RIBAVIRIN
     Indication: HEPATITIS C
     Dosage: 600 MG, BID
     Route: 065
     Dates: start: 20140131, end: 20140718
  3. SEROPLEX [Concomitant]
     Active Substance: ESCITALOPRAM OXALATE
     Indication: ANXIETY
     Dosage: 20 MG, QD
     Route: 048
     Dates: start: 2002, end: 20170203
  4. OXAZEPAM. [Concomitant]
     Active Substance: OXAZEPAM
     Indication: ANXIETY
     Dosage: 25 MG, QD
     Route: 048
     Dates: start: 2002, end: 20170203
  5. OROZAMUDOL [Concomitant]
     Active Substance: TRAMADOL
     Indication: PAIN
     Dosage: UNK MG, QID
     Route: 065
  6. LITHIUM. [Concomitant]
     Active Substance: LITHIUM
     Indication: BIPOLAR DISORDER
     Dosage: 800 MG, UNK
     Route: 048
     Dates: start: 2002, end: 20170203
  7. SOVALDI [Suspect]
     Active Substance: SOFOSBUVIR
     Indication: HEPATITIS C
     Dosage: 400 MG, QD
     Route: 065
     Dates: start: 20140131, end: 20140718
  8. TERALITHE [Concomitant]
     Active Substance: LITHIUM CARBONATE
     Indication: BIPOLAR DISORDER
     Dosage: 800 MG, QD
     Route: 065
     Dates: start: 2002, end: 20170203
  9. ZOPICLONE [Concomitant]
     Active Substance: ZOPICLONE
     Indication: BIPOLAR DISORDER
     Dosage: 7.5 MG, QD
     Route: 048
     Dates: start: 2002, end: 20170203
  10. ALPRAZOLAM. [Concomitant]
     Active Substance: ALPRAZOLAM
     Indication: BIPOLAR DISORDER
     Dosage: 0.5 MG, QD
     Route: 048
     Dates: start: 2002, end: 20170203
  11. MILNACIPRAN [Concomitant]
     Active Substance: MILNACIPRAN
     Indication: ANXIETY
     Dosage: 50 MG, TID
     Route: 065
     Dates: end: 20170203
  12. COPEGUS [Suspect]
     Active Substance: RIBAVIRIN
     Indication: HEPATITIS C
     Dosage: 500 MG, BID
     Route: 065
     Dates: start: 20150910, end: 20160306
  13. SOVALDI [Suspect]
     Active Substance: SOFOSBUVIR
     Indication: PRODUCT USED FOR UNKNOWN INDICATION
     Dosage: 400 MG, QD
     Route: 065
     Dates: start: 20150910, end: 20160306

REACTIONS (6)
  - Hepatocellular injury [Fatal]
  - Renal failure [Fatal]
  - Portal hypertension [Unknown]
  - Oesophageal varices haemorrhage [Unknown]
  - Cardiac failure [Fatal]
  - Oesophageal variceal ligation [Unknown]

NARRATIVE: CASE EVENT DATE: 20170201
